FAERS Safety Report 11088230 (Version 1)
Quarter: 2015Q2

REPORT INFORMATION
  Report Type: Spontaneous
  Country: BR (occurrence: BR)
  Receive Date: 20150504
  Receipt Date: 20150504
  Transmission Date: 20150821
  Serious: Yes (Death)
  Sender: FDA-Public Use
  Company Number: BR-PFIZER INC-2015147525

PATIENT
  Age: 77 Year
  Sex: Male

DRUGS (6)
  1. HIGROTON [Suspect]
     Active Substance: CHLORTHALIDONE
     Indication: DIURETIC THERAPY
     Dosage: 25 MG, 3X/WEEK
  2. PLAVIX [Suspect]
     Active Substance: CLOPIDOGREL BISULFATE
  3. LOTENSIN [Suspect]
     Active Substance: BENAZEPRIL HYDROCHLORIDE
     Dosage: 10 MG, UNK
  4. CALTREN [Suspect]
     Active Substance: NITRENDIPINE
     Dosage: 200 MG, UNK
  5. TEGRETOL [Suspect]
     Active Substance: CARBAMAZEPINE
     Indication: SEIZURE
     Dosage: 200 MG, 2X/DAY
     Dates: start: 1986
  6. LIPITOR [Suspect]
     Active Substance: ATORVASTATIN CALCIUM
     Indication: BLOOD CHOLESTEROL

REACTIONS (1)
  - Cerebrovascular accident [Fatal]
